FAERS Safety Report 10366303 (Version 1)
Quarter: 2014Q3

REPORT INFORMATION
  Report Type: Spontaneous
  Country: FR (occurrence: FR)
  Receive Date: 20140806
  Receipt Date: 20140806
  Transmission Date: 20150326
  Serious: Yes (Hospitalization)
  Sender: FDA-Public Use
  Company Number: PHHY2014FR094771

PATIENT
  Age: 70 Year
  Sex: Female

DRUGS (13)
  1. TERCIAN [Suspect]
     Active Substance: CYAMEMAZINE
     Dosage: UNK UKN, UNK
     Route: 048
  2. LERCAN [Concomitant]
     Active Substance: LERCANIDIPINE
     Dosage: UNK UKN, UNK
  3. PARACETAMOL [Concomitant]
     Active Substance: ACETAMINOPHEN
     Dosage: UNK UKN, UNK (1 TO 2 GRAM DAILY)
  4. SIMVASTATIN. [Suspect]
     Active Substance: SIMVASTATIN
     Dosage: 10 MG, QD
     Route: 048
     Dates: end: 20140723
  5. EMEND [Suspect]
     Active Substance: APREPITANT
     Dosage: 80 MG, (DAY 3)
     Route: 048
     Dates: end: 20140619
  6. HYDROCHLOROTHIAZIDE\VALSARTAN [Suspect]
     Active Substance: HYDROCHLOROTHIAZIDE\VALSARTAN
     Dosage: 160 MG, QD
     Route: 048
  7. ZOPHREN [Suspect]
     Active Substance: ONDANSETRON
     Indication: PREMEDICATION
     Dosage: 8 MG, (ONCE)
     Route: 048
     Dates: start: 20140617, end: 20140617
  8. 5-FLUOROURACIL//FLUOROURACIL [Suspect]
     Active Substance: FLUOROURACIL
     Indication: CHEMOTHERAPY
     Dosage: 700 MG, ONCE (1ST CYCLE)
     Route: 042
     Dates: start: 20140617, end: 20140617
  9. ENDOXAN [Suspect]
     Active Substance: CYCLOPHOSPHAMIDE
     Indication: CHEMOTHERAPY
     Dosage: 700 MG, ONCE (1ST CYCLE)
     Route: 042
     Dates: start: 20140617, end: 20140617
  10. EPIRUBICIN [Suspect]
     Active Substance: EPIRUBICIN
     Indication: CHEMOTHERAPY
     Dosage: 140 MG, ONCE (1ST CYCLE)
     Route: 042
     Dates: start: 20140617, end: 20140617
  11. EMEND [Suspect]
     Active Substance: APREPITANT
     Indication: PREMEDICATION
     Dosage: 125 MG, (DAY 1)
     Route: 048
     Dates: start: 20140617
  12. EMEND [Suspect]
     Active Substance: APREPITANT
     Dosage: 80 MG, (DAY 2)
     Route: 048
  13. SOLU-MEDROL [Concomitant]
     Active Substance: METHYLPREDNISOLONE SODIUM SUCCINATE
     Indication: PREMEDICATION
     Dosage: 60 MG, UNK

REACTIONS (2)
  - Cholestasis [Not Recovered/Not Resolved]
  - Hepatocellular injury [Not Recovered/Not Resolved]

NARRATIVE: CASE EVENT DATE: 20140707
